FAERS Safety Report 5655962-1 (Version None)
Quarter: 2008Q1

REPORT INFORMATION
  Report Type: 
  Country: None (occurrence: None)
  Receive Date: 20080307
  Receipt Date: 20080226
  Transmission Date: 20080703
  Serious: Yes (Hospitalization)
  Sender: FDA-Public Use
  Company Number: FR-PFIZER INC-2008018019

PATIENT
  Sex: Female

DRUGS (6)
  1. MEDROL [Suspect]
     Indication: EPILEPSY
     Route: 048
     Dates: start: 20070714, end: 20071024
  2. VALPROIC ACID [Suspect]
     Indication: EPILEPSY
     Route: 048
     Dates: start: 20070912, end: 20071128
  3. LEVETIRACETAM [Suspect]
     Indication: EPILEPSY
     Route: 048
  4. TEMOZOLOMIDE [Suspect]
     Indication: GLIOBLASTOMA
     Route: 048
     Dates: start: 20070912, end: 20071024
  5. ONDANSETRON [Suspect]
     Indication: NAUSEA
     Route: 048
     Dates: start: 20070912, end: 20071024
  6. AUGMENTIN '125' [Suspect]
     Route: 048
     Dates: start: 20071102, end: 20071102

REACTIONS (1)
  - HEPATITIS CHOLESTATIC [None]
